FAERS Safety Report 5986039-3 (Version None)
Quarter: 2008Q4

REPORT INFORMATION
  Report Type: 
  Country: None (occurrence: None)
  Receive Date: 20081205
  Receipt Date: 20081205
  Transmission Date: 20090506
  Serious: Yes (Other)
  Sender: FDA-Public Use
  Company Number: None

PATIENT
  Sex: Male
  Weight: 127.0072 kg

DRUGS (1)
  1. AUGMENTIN '875' [Suspect]
     Indication: CELLULITIS
     Dosage: I TABLET BID PO
     Route: 048
     Dates: start: 20081126, end: 20081201

REACTIONS (5)
  - BLISTER [None]
  - BURNING SENSATION [None]
  - PAIN IN EXTREMITY [None]
  - PRURITUS [None]
  - URTICARIA [None]
